FAERS Safety Report 17679620 (Version 1)
Quarter: 2020Q2

REPORT INFORMATION
  Report Type: Spontaneous
  Country: US (occurrence: US)
  Receive Date: 20200416
  Receipt Date: 20200416
  Transmission Date: 20200714
  Serious: No
  Sender: FDA-Public Use
  Company Number: None

PATIENT
  Sex: Male

DRUGS (1)
  1. JAKAFI [Suspect]
     Active Substance: RUXOLITINIB
     Indication: IMMUNE THROMBOCYTOPENIA
     Route: 048
     Dates: start: 20200323

REACTIONS (5)
  - Dizziness [None]
  - Flatulence [None]
  - Rash [None]
  - Fall [None]
  - Rash erythematous [None]
